FAERS Safety Report 15679331 (Version 3)
Quarter: 2019Q1

REPORT INFORMATION
  Report Type: Spontaneous
  Country: US (occurrence: US)
  Receive Date: 20181203
  Receipt Date: 20190325
  Transmission Date: 20190417
  Serious: Yes (Other)
  Sender: FDA-Public Use
  Company Number: US-AMGEN-USASP2018170872

PATIENT
  Age: 41 Year
  Sex: Female

DRUGS (4)
  1. AIMOVIG [Suspect]
     Active Substance: ERENUMAB-AOOE
     Dosage: UNK
     Route: 065
     Dates: start: 201902
  2. AIMOVIG [Suspect]
     Active Substance: ERENUMAB-AOOE
     Indication: MIGRAINE
     Dosage: UNK
     Route: 065
     Dates: start: 201805, end: 201806
  3. MAGNESIUM SULFATE. [Suspect]
     Active Substance: MAGNESIUM SULFATE
     Indication: CONSTIPATION
     Dosage: UNK
     Route: 065
     Dates: start: 2018
  4. LORTAB [LORATADINE] [Concomitant]
     Active Substance: LORATADINE
     Indication: HEADACHE
     Dosage: UNK UNK, AS NECESSARY

REACTIONS (5)
  - Constipation [Not Recovered/Not Resolved]
  - Abdominal pain [Unknown]
  - Migraine [Unknown]
  - Papilloma excision [Unknown]
  - Heart rate increased [Recovering/Resolving]

NARRATIVE: CASE EVENT DATE: 2018
